FAERS Safety Report 23533038 (Version 2)
Quarter: 2024Q1

REPORT INFORMATION
  Report Type: Spontaneous
  Country: JP (occurrence: JP)
  Receive Date: 20240216
  Receipt Date: 20240223
  Transmission Date: 20240409
  Serious: Yes (Hospitalization)
  Sender: FDA-Public Use
  Company Number: JP-PFIZER INC-PV202400020633

PATIENT
  Age: 85 Year
  Sex: Female

DRUGS (6)
  1. PAXLOVID [Suspect]
     Active Substance: NIRMATRELVIR\RITONAVIR
     Indication: COVID-19 treatment
     Dosage: REDUCED DOSE
     Route: 048
     Dates: start: 20230101
  2. ABILIFY [Concomitant]
     Active Substance: ARIPIPRAZOLE
     Dosage: UNK
  3. MEMANTINE [Concomitant]
     Active Substance: MEMANTINE
     Dosage: UNK
  4. GALANTAMINE [Concomitant]
     Active Substance: GALANTAMINE
     Dosage: UNK
  5. HERBALS [Concomitant]
     Active Substance: HERBALS
     Dosage: UNK
  6. CEFTRIAXONE [Concomitant]
     Active Substance: CEFTRIAXONE\CEFTRIAXONE SODIUM
     Indication: Antibiotic therapy
     Dosage: 1 G
     Route: 041
     Dates: start: 20230101

REACTIONS (4)
  - Oxygen saturation decreased [Unknown]
  - Eating disorder [Unknown]
  - Pneumonia aspiration [Recovered/Resolved]
  - Blood pressure systolic increased [Unknown]

NARRATIVE: CASE EVENT DATE: 20230101
